FAERS Safety Report 10176318 (Version 1)
Quarter: 2014Q2

REPORT INFORMATION
  Report Type: Spontaneous
  Country: US (occurrence: US)
  Receive Date: 20140516
  Receipt Date: 20140516
  Transmission Date: 20141212
  Serious: No
  Sender: FDA-Public Use
  Company Number: US-PFIZER INC-2014133055

PATIENT
  Age: 44 Year
  Sex: Male
  Weight: 77.1 kg

DRUGS (3)
  1. VIAGRA [Suspect]
     Dosage: UNK
     Route: 048
     Dates: start: 2013, end: 2014
  2. HYDROCODONE [Concomitant]
     Indication: PAIN
     Dosage: UNK
  3. CARISOPRODOL [Concomitant]
     Indication: PAIN
     Dosage: UNK

REACTIONS (1)
  - Depression [Unknown]
